FAERS Safety Report 6710660-8 (Version None)
Quarter: 2010Q2

REPORT INFORMATION
  Report Type: 
  Country: None (occurrence: None)
  Receive Date: 20100504
  Receipt Date: 20100504
  Transmission Date: 20101027
  Serious: Yes (Other)
  Sender: FDA-Public Use
  Company Number: None

PATIENT
  Age: 52 Year
  Sex: Female
  Weight: 46.2669 kg

DRUGS (1)
  1. KENOLOG [Suspect]
     Indication: ANTIALLERGIC THERAPY
     Dosage: 1 IM
     Route: 030
     Dates: start: 20100217, end: 20100217

REACTIONS (12)
  - CONFUSIONAL STATE [None]
  - FATIGUE [None]
  - HEADACHE [None]
  - HYPERHIDROSIS [None]
  - INJECTION SITE REACTION [None]
  - MENSTRUAL DISORDER [None]
  - NERVOUS SYSTEM DISORDER [None]
  - PAIN [None]
  - PALPITATIONS [None]
  - RASH MACULAR [None]
  - SKIN EXFOLIATION [None]
  - VULVOVAGINAL PRURITUS [None]
